FAERS Safety Report 6923004-3 (Version None)
Quarter: 2010Q3

REPORT INFORMATION
  Report Type: 
  Country: None (occurrence: None)
  Receive Date: 20100813
  Receipt Date: 20100804
  Transmission Date: 20110219
  Serious: Yes (Hospitalization)
  Sender: FDA-Public Use
  Company Number: ES-PFIZER INC-2010097747

PATIENT
  Age: 97 Year
  Sex: Female

DRUGS (6)
  1. ALDACTONE [Suspect]
     Indication: HYPERTENSION
     Dosage: 25 MG, 1X/DAY
     Route: 048
     Dates: end: 20100306
  2. LYRICA [Interacting]
     Indication: BACK PAIN
     Dosage: UNK
     Route: 048
     Dates: start: 20100201
  3. ENALAPRIL [Interacting]
     Indication: HYPERTENSION
     Dosage: UNK
     Route: 048
     Dates: end: 20100601
  4. TRAMADOL [Interacting]
     Indication: BACK PAIN
     Dosage: UNK
     Route: 048
     Dates: start: 20100207, end: 20100211
  5. MORPHINE HYDROCHLORIDE [Interacting]
     Indication: BACK PAIN
     Dosage: UNK
     Route: 058
     Dates: start: 20100201, end: 20100306
  6. KETESSE [Concomitant]
     Indication: BACK PAIN
     Dosage: UNK
     Route: 048
     Dates: start: 20100201, end: 20100601

REACTIONS (2)
  - CONFUSIONAL STATE [None]
  - DRUG INTERACTION [None]
